FAERS Safety Report 6722328-2 (Version None)
Quarter: 2010Q2

REPORT INFORMATION
  Report Type: 
  Country: None (occurrence: None)
  Receive Date: 20100512
  Receipt Date: 20100505
  Transmission Date: 20101027
  Serious: Yes (Death)
  Sender: FDA-Public Use
  Company Number: IE-ALLERGAN-1003176US

PATIENT
  Age: 15 Year
  Sex: Male
  Weight: 18 kg

DRUGS (4)
  1. BOTOX [Suspect]
     Indication: PAIN
     Dosage: 400 UNITS, SINGLE
     Dates: start: 20100120, end: 20100120
  2. BOTOX [Suspect]
     Indication: MUSCLE SPASMS
  3. BACLOFEN [Concomitant]
     Indication: MUSCLE SPASTICITY
     Dosage: 5 MG, UNK
  4. DOMPERIDONE [Concomitant]
     Dosage: 5 MG, UNK

REACTIONS (1)
  - DEATH [None]
